FAERS Safety Report 17418517 (Version 1)
Quarter: 2020Q1

REPORT INFORMATION
  Report Type: Report from Study
  Country: US (occurrence: US)
  Receive Date: 20200214
  Receipt Date: 20200214
  Transmission Date: 20200409
  Serious: Yes (Other)
  Sender: FDA-Public Use
  Company Number: US-GLAXOSMITHKLINE-2019-TSO01661-US

PATIENT
  Age: 59 Year
  Sex: Female

DRUGS (6)
  1. NIRAPARIB [Suspect]
     Active Substance: NIRAPARIB
     Dosage: 300 MG DAILY
  2. NIRAPARIB [Suspect]
     Active Substance: NIRAPARIB
     Dosage: 300 MG, QD
     Dates: start: 201912
  3. NIRAPARIB [Suspect]
     Active Substance: NIRAPARIB
     Dosage: 300 MG DAILY BETWEEN 8 AND 9 AM WITH BREAKFAST
  4. NIRAPARIB [Suspect]
     Active Substance: NIRAPARIB
     Indication: FALLOPIAN TUBE CANCER
     Dosage: 300 MG, QAM WITH FOOD
     Route: 048
  5. KOMBUCHA [Concomitant]
     Active Substance: DIETARY SUPPLEMENT
     Indication: PRODUCT USED FOR UNKNOWN INDICATION
     Dosage: UNK
  6. NIRAPARIB [Suspect]
     Active Substance: NIRAPARIB
     Indication: OVARIAN CANCER
     Dosage: 300 MG, QPM WITHOUT FOOD
     Route: 048
     Dates: start: 201804

REACTIONS (24)
  - Emotional distress [Recovered/Resolved]
  - Nervousness [Unknown]
  - Recurrent cancer [Unknown]
  - Stress [Not Recovered/Not Resolved]
  - Carbohydrate antigen 125 increased [Unknown]
  - Insomnia [Recovered/Resolved]
  - Abdominal pain [Unknown]
  - Hyperhidrosis [Unknown]
  - Burn oral cavity [Recovered/Resolved]
  - Chest discomfort [Recovered/Resolved]
  - Ear infection [Recovered/Resolved]
  - Headache [Not Recovered/Not Resolved]
  - Arthralgia [Not Recovered/Not Resolved]
  - Constipation [Recovering/Resolving]
  - Thirst [Unknown]
  - Anxiety [Not Recovered/Not Resolved]
  - Affect lability [Unknown]
  - Hot flush [Not Recovered/Not Resolved]
  - Inflammation [Unknown]
  - Fatigue [Recovered/Resolved]
  - Mood swings [Unknown]
  - Dyschezia [Unknown]
  - Blood pressure increased [Recovered/Resolved]
  - Product dose omission [Unknown]

NARRATIVE: CASE EVENT DATE: 2019
